FAERS Safety Report 7076112-3 (Version None)
Quarter: 2010Q4

REPORT INFORMATION
  Report Type: 
  Country: None (occurrence: None)
  Receive Date: 20101021
  Receipt Date: 20101007
  Transmission Date: 20110411
  Serious: Yes (Hospitalization, Other)
  Sender: FDA-Public Use
  Company Number: 2010MA003428

PATIENT
  Age: 31 Year
  Sex: Female

DRUGS (7)
  1. HYDROCHLOROTHIAZIDE [Suspect]
     Indication: HYPERTENSION
     Dosage: 12.5 MQ;QD;PO
     Route: 048
  2. LABETALOL HCL [Concomitant]
  3. ORAL IRON [Concomitant]
  4. MULTI-VITAMINS [Concomitant]
  5. ACETAMINOPHEN [Concomitant]
  6. METOPROLOL [Concomitant]
  7. LORATADINE [Concomitant]

REACTIONS (9)
  - BLOOD PRESSURE INCREASED [None]
  - DIZZINESS POSTURAL [None]
  - DYSGEUSIA [None]
  - HYPONATRAEMIA [None]
  - NAUSEA [None]
  - NEUROBLASTOMA [None]
  - PAROSMIA [None]
  - RHINORRHOEA [None]
  - VOMITING [None]
